FAERS Safety Report 10216148 (Version 1)
Quarter: 2014Q2

REPORT INFORMATION
  Report Type: Spontaneous
  Country: US (occurrence: US)
  Receive Date: 20140604
  Receipt Date: 20140604
  Transmission Date: 20141212
  Serious: No
  Sender: FDA-Public Use
  Company Number: US-009507513-1406USA000091

PATIENT
  Age: 81 Year
  Sex: Female

DRUGS (2)
  1. MIRALAX [Suspect]
     Indication: CONSTIPATION
     Dosage: UNK, UNKNOWN
     Route: 048
     Dates: start: 20140509, end: 20140514
  2. MIRALAX [Suspect]
     Dosage: UNK, UNKNOWN
     Route: 048
     Dates: start: 201405

REACTIONS (1)
  - Diarrhoea [Not Recovered/Not Resolved]
